FAERS Safety Report 7835471-1 (Version None)
Quarter: 2011Q4

REPORT INFORMATION
  Report Type: 
  Country: None (occurrence: None)
  Receive Date: 20111024
  Receipt Date: 20111014
  Transmission Date: 20120403
  Serious: Yes (Other)
  Sender: FDA-Public Use
  Company Number: US-ASTRAZENECA-2011SE23106

PATIENT
  Sex: Female

DRUGS (1)
  1. SEROQUEL [Suspect]
     Route: 048
     Dates: start: 20030101, end: 20080101

REACTIONS (8)
  - ABNORMAL WEIGHT GAIN [None]
  - TRISMUS [None]
  - TARDIVE DYSKINESIA [None]
  - SLEEP APNOEA SYNDROME [None]
  - DYSKINESIA [None]
  - EMOTIONAL DISTRESS [None]
  - TOOTH LOSS [None]
  - DENTAL CARIES [None]
